FAERS Safety Report 22320273 (Version 2)
Quarter: 2023Q2

REPORT INFORMATION
  Report Type: Report from Study
  Country: CA (occurrence: CA)
  Receive Date: 20230515
  Receipt Date: 20230517
  Transmission Date: 20230721
  Serious: No
  Sender: FDA-Public Use
  Company Number: CA-AstraZeneca-2023A106938

PATIENT
  Sex: Female
  Weight: 76.4 kg

DRUGS (1)
  1. ENHERTU [Suspect]
     Active Substance: FAM-TRASTUZUMAB DERUXTECAN-NXKI
     Indication: HER2 positive breast cancer
     Dosage: 405 MG, ONCE EVERY 3 WK
     Route: 042
     Dates: start: 20230328, end: 20230510

REACTIONS (1)
  - Off label use [Unknown]
